FAERS Safety Report 6316270-9 (Version None)
Quarter: 2009Q3

REPORT INFORMATION
  Report Type: 
  Country: None (occurrence: None)
  Receive Date: 20090820
  Receipt Date: 20090812
  Transmission Date: 20100115
  Serious: Yes (Other)
  Sender: FDA-Public Use
  Company Number: CA-AVENTIS-200912716GDDC

PATIENT
  Age: 50 Year
  Sex: Female

DRUGS (6)
  1. LANTUS [Suspect]
     Route: 058
  2. AUTOPEN 24 [Suspect]
  3. ANTI-SMOKING AGENTS [Suspect]
     Route: 048
     Dates: start: 20090202
  4. HUMALOG [Concomitant]
     Route: 058
  5. ASAPHEN [Concomitant]
     Route: 048
     Dates: start: 20030101
  6. CALCIUM WITH VITAMIN D             /00944201/ [Concomitant]
     Dosage: DOSE: 1000/800
     Route: 048
     Dates: start: 20020101

REACTIONS (2)
  - DRUG INTERACTION [None]
  - HYPERGLYCAEMIA [None]
